FAERS Safety Report 4720634-4 (Version None)
Quarter: 2005Q3

REPORT INFORMATION
  Report Type: 
  Country: None (occurrence: None)
  Receive Date: 20050721
  Receipt Date: 20050713
  Transmission Date: 20060218
  Serious: Yes (Other)
  Sender: FDA-Public Use
  Company Number: PHEH2005US07807

PATIENT
  Sex: Female

DRUGS (2)
  1. ENABLEX [Suspect]
     Dosage: UNK
     Dates: start: 20050101
  2. TAMBOCOR [Suspect]
     Dosage: UNK

REACTIONS (5)
  - CLAVICLE FRACTURE [None]
  - CSF PRESSURE INCREASED [None]
  - DRUG INTERACTION [None]
  - FALL [None]
  - INCONTINENCE [None]
